FAERS Safety Report 7835323-7 (Version None)
Quarter: 2011Q4

REPORT INFORMATION
  Report Type: 
  Country: None (occurrence: None)
  Receive Date: 20111024
  Receipt Date: 20111018
  Transmission Date: 20120403
  Serious: Yes (Other)
  Sender: FDA-Public Use
  Company Number: GB-AMGEN-GBRSP2011038271

PATIENT
  Age: 66 Year
  Sex: Female
  Weight: 97.5 kg

DRUGS (7)
  1. PHENYTOIN [Concomitant]
     Indication: CONVULSION
     Dosage: 300 MG, QD
     Route: 048
  2. FERRITIN [Concomitant]
  3. SIMVASTATIN [Concomitant]
     Dosage: 40 MG, QD
     Route: 048
  4. LOSARTAN POTASSIUM [Concomitant]
     Dosage: 100 MG, QD
     Route: 048
  5. DEXAMETHASONE [Concomitant]
     Indication: CHEMOTHERAPY
     Dosage: 8 MG, QD
     Route: 048
     Dates: start: 20110726, end: 20110728
  6. NEULASTA [Suspect]
     Indication: CHEMOTHERAPY
     Dosage: 6 MG, 3 TIMES/WK
     Route: 058
     Dates: start: 20110506, end: 20110727
  7. DOCETAXEL [Concomitant]
     Indication: BREAST CANCER RECURRENT
     Dosage: 150 MG, UNK
     Route: 042
     Dates: start: 20110506, end: 20110726

REACTIONS (7)
  - TACHYCARDIA [None]
  - ASTHENIA [None]
  - FATIGUE [None]
  - OEDEMA PERIPHERAL [None]
  - SKIN SWELLING [None]
  - DYSPNOEA [None]
  - ERYTHEMA [None]
